FAERS Safety Report 22841731 (Version 2)
Quarter: 2023Q4

REPORT INFORMATION
  Report Type: Spontaneous
  Country: US (occurrence: US)
  Receive Date: 20230821
  Receipt Date: 20231120
  Transmission Date: 20240110
  Serious: Yes (Death, Other)
  Sender: FDA-Public Use
  Company Number: US-BRISTOL-MYERS SQUIBB COMPANY-2023-115646

PATIENT
  Age: 60 Year
  Sex: Male

DRUGS (2)
  1. OPDIVO [Suspect]
     Active Substance: NIVOLUMAB
     Indication: Lung cancer metastatic
     Dosage: DOSE : 360 MG OPDIVO/50 MG YERVOY;     FREQ : OPDIVO EVERY 3 WEEKS?YERVOY EVERY 6 WEEKS
     Route: 042
     Dates: start: 20230711
  2. YERVOY [Suspect]
     Active Substance: IPILIMUMAB
     Indication: Lung cancer metastatic
     Route: 042
     Dates: start: 20230711

REACTIONS (1)
  - Death [Fatal]

NARRATIVE: CASE EVENT DATE: 20230808
